FAERS Safety Report 15136442 (Version 2)
Quarter: 2018Q3

REPORT INFORMATION
  Report Type: Spontaneous
  Country: GB (occurrence: GB)
  Receive Date: 20180712
  Receipt Date: 20180723
  Transmission Date: 20181010
  Serious: Yes (Disabling)
  Sender: FDA-Public Use
  Company Number: GB-TEVA-2018-GB-923987

PATIENT
  Age: 39 Year
  Sex: Female

DRUGS (5)
  1. PREDNISOLONE. [Suspect]
     Active Substance: PREDNISOLONE
     Route: 042
  2. PREDNISOLONE. [Suspect]
     Active Substance: PREDNISOLONE
     Dosage: DOSE REDUCTION SCHEDULE TO REDUCE BY 10MG EVERY 5 DAYS UNTIL 10MG THEN 10MG FOR 2 WEEKS
     Route: 048
     Dates: start: 20180528
  3. METHYLPREDNISOLONE. [Concomitant]
     Active Substance: METHYLPREDNISOLONE
     Dosage: 1 GRAM DAILY;
  4. PREDNISOLONE. [Suspect]
     Active Substance: PREDNISOLONE
     Indication: UVEITIS
     Dosage: DOSE REDUCTION SCHEDULE TO REDUCE BY 10MG EVERY 5 DAYS UNTIL 10MG THEN 10MG FOR 2 WEEKS
     Route: 048
  5. PREDNISOLONE. [Suspect]
     Active Substance: PREDNISOLONE
     Dosage: DOSE REDUCTION SCHEDULE TO REDUCE BY 10MG EVERY 5 DAYS UNTIL 10MG THEN 10MG FOR 2 WEEKS
     Route: 048
     Dates: start: 20180503, end: 20180528

REACTIONS (3)
  - Amnesia [Not Recovered/Not Resolved]
  - Cognitive disorder [Not Recovered/Not Resolved]
  - Decreased appetite [Not Recovered/Not Resolved]

NARRATIVE: CASE EVENT DATE: 20180504
